FAERS Safety Report 6198398-X (Version None)
Quarter: 2009Q2

REPORT INFORMATION
  Report Type: 
  Country: None (occurrence: None)
  Receive Date: 20090518
  Receipt Date: 20090306
  Transmission Date: 20091009
  Serious: No
  Sender: FDA-Public Use
  Company Number: WAES 0903USA02009

PATIENT
  Sex: 0

DRUGS (1)
  1. ISENTRESS [Suspect]

REACTIONS (1)
  - PATHOGEN RESISTANCE [None]
